FAERS Safety Report 6475727-0 (Version None)
Quarter: 2009Q4

REPORT INFORMATION
  Report Type: 
  Country: None (occurrence: None)
  Receive Date: 20091204
  Receipt Date: 20090105
  Transmission Date: 20100525
  Serious: No
  Sender: FDA-Public Use
  Company Number: US-AMGEN-KDL326923

PATIENT
  Sex: Female

DRUGS (2)
  1. ENBREL [Suspect]
     Indication: RHEUMATOID ARTHRITIS
     Route: 058
     Dates: start: 20030501
  2. ENBREL [Suspect]
     Indication: PSORIASIS

REACTIONS (6)
  - INJECTION SITE CELLULITIS [None]
  - INJURY [None]
  - PHARYNGITIS [None]
  - PRODUCTIVE COUGH [None]
  - PSORIASIS [None]
  - SINUSITIS [None]
